FAERS Safety Report 21109709 (Version 1)
Quarter: 2022Q3

REPORT INFORMATION
  Report Type: Spontaneous
  Country: CA (occurrence: CA)
  Receive Date: 20220721
  Receipt Date: 20220721
  Transmission Date: 20221027
  Serious: Yes (Hospitalization, Other)
  Sender: FDA-Public Use
  Company Number: CA-SAMSUNG BIOEPIS-SB-2022-17482

PATIENT
  Age: 35 Year
  Sex: Male
  Weight: 75 kg

DRUGS (4)
  1. INFLIXIMAB [Suspect]
     Active Substance: INFLIXIMAB
     Indication: Crohn^s disease
     Route: 042
  2. PREDNISONE [Concomitant]
     Active Substance: PREDNISONE
     Indication: Product used for unknown indication
     Route: 065
  3. PREDNISONE [Concomitant]
     Active Substance: PREDNISONE
     Route: 065
  4. PREDNISONE [Concomitant]
     Active Substance: PREDNISONE
     Route: 065

REACTIONS (14)
  - Abdominal pain [Unknown]
  - Abscess [Unknown]
  - Asthenia [Unknown]
  - Colitis [Unknown]
  - Decreased appetite [Unknown]
  - Diverticulitis [Unknown]
  - Diverticulum [Unknown]
  - Faecal calprotectin increased [Unknown]
  - Fistula of small intestine [Unknown]
  - Gastrooesophageal reflux disease [Unknown]
  - Large intestinal stenosis [Unknown]
  - Pseudopolyp [Unknown]
  - Weight increased [Unknown]
  - Drug ineffective [Unknown]
